FAERS Safety Report 10335143 (Version 2)
Quarter: 2015Q4

REPORT INFORMATION
  Report Type: Spontaneous
  Country: US (occurrence: US)
  Receive Date: 20140723
  Receipt Date: 20151001
  Transmission Date: 20160304
  Serious: Yes (Hospitalization, Other)
  Sender: FDA-Public Use
  Company Number: US-ASTRAZENECA-2014SE51860

PATIENT
  Age: 27468 Day
  Sex: Female
  Weight: 76.2 kg

DRUGS (8)
  1. LIPITOR [Concomitant]
     Active Substance: ATORVASTATIN CALCIUM
     Indication: BLOOD CHOLESTEROL INCREASED
     Route: 048
  2. ATORVASTATIN [Concomitant]
     Active Substance: ATORVASTATIN
     Indication: BLOOD CHOLESTEROL ABNORMAL
     Dosage: DAILY
  3. ATACAND [Suspect]
     Active Substance: CANDESARTAN CILEXETIL
     Indication: HYPERTENSION
     Route: 048
     Dates: start: 1984
  4. FEMARA [Suspect]
     Active Substance: LETROZOLE
     Route: 065
  5. AROMASIN [Suspect]
     Active Substance: EXEMESTANE
     Route: 065
  6. ATACAND [Suspect]
     Active Substance: CANDESARTAN CILEXETIL
     Indication: HYPERTENSION
     Dosage: GENERIC OF ATACAND
     Route: 065
  7. ATACAND [Suspect]
     Active Substance: CANDESARTAN CILEXETIL
     Indication: HYPERTENSION
     Dosage: ANOTHER GENERIC OF ATACAND
     Route: 065
  8. TAMOXIFEN [Suspect]
     Active Substance: TAMOXIFEN
     Indication: BREAST CANCER FEMALE
     Route: 048
     Dates: start: 2014

REACTIONS (16)
  - Breast cancer stage I [Unknown]
  - Heart rate irregular [Unknown]
  - Body height decreased [Not Recovered/Not Resolved]
  - Knee arthroplasty [None]
  - Spinal fracture [Unknown]
  - Eye disorder [Unknown]
  - Osteoporosis [Unknown]
  - Hypokinesia [Unknown]
  - Osteopenia [None]
  - Product substitution issue [None]
  - Limb fracture [Unknown]
  - Fall [Unknown]
  - Limb discomfort [Unknown]
  - Heart rate increased [Unknown]
  - Gait disturbance [Unknown]
  - Dizziness [Unknown]

NARRATIVE: CASE EVENT DATE: 20061201
